FAERS Safety Report 16247921 (Version 1)
Quarter: 2019Q2

REPORT INFORMATION
  Report Type: Spontaneous
  Country: US (occurrence: US)
  Receive Date: 20190323
  Receipt Date: 20190323
  Transmission Date: 20190711
  Serious: No
  Sender: FDA-Public Use
  Company Number: None

PATIENT
  Age: 70 Year
  Sex: Male

DRUGS (1)
  1. PRALUENT [Suspect]
     Active Substance: ALIROCUMAB

REACTIONS (3)
  - Cough [None]
  - Oropharyngeal pain [None]
  - Wheezing [None]

NARRATIVE: CASE EVENT DATE: 20190323
